FAERS Safety Report 5168946-7 (Version None)
Quarter: 2006Q4

REPORT INFORMATION
  Report Type: 
  Country: None (occurrence: None)
  Receive Date: 20061211
  Receipt Date: 20061204
  Transmission Date: 20070319
  Serious: Yes (Hospitalization)
  Sender: FDA-Public Use
  Company Number: US-GLAXOSMITHKLINE-A0630264A

PATIENT
  Sex: Female

DRUGS (1)
  1. LAMICTAL [Suspect]

REACTIONS (1)
  - PANCREATITIS [None]
